FAERS Safety Report 9503811 (Version 3)
Quarter: 2013Q4

REPORT INFORMATION
  Report Type: Spontaneous
  Country: US (occurrence: None)
  Receive Date: 20130107
  Receipt Date: 20131226
  Transmission Date: 20140711
  Serious: Yes (Other)
  Sender: FDA-Public Use
  Company Number: PHEH2012US019869

PATIENT
  Age: 68 Year
  Sex: Female
  Weight: 68 kg

DRUGS (13)
  1. GILENYA [Suspect]
     Indication: MULTIPLE SCLEROSIS
     Route: 048
  2. CYMBALTA (DULOXETINE HYDROCHLORIDE) [Concomitant]
  3. ATROPINE SULFATE (ATROPINE SULFATE) [Concomitant]
  4. LYRICA (PREGABALIN) [Concomitant]
  5. LISINOPRIL (LISINOPRIL) [Concomitant]
  6. CAPTOPRIL (CAPTOPRIL) [Concomitant]
  7. IBUPROFEN (IBUPROFEN) [Concomitant]
  8. ALBUTEROL (SALBUTAMOL) [Concomitant]
  9. DIPHENHYDRAMINE (DIPHENHYDRAMINE) [Concomitant]
  10. PRAMIPEXOLE (PRAMIPEXOLE) [Concomitant]
  11. ASA (ACETYLSALICYLIC ACID) [Concomitant]
  12. VITAMIN D3 (COLECALCIFEROL) [Concomitant]
  13. DONEPEZIL (DONEPEZIL) [Concomitant]

REACTIONS (2)
  - Decreased appetite [None]
  - Diarrhoea [None]
